FAERS Safety Report 9821522 (Version 1)
Quarter: 2014Q1

REPORT INFORMATION
  Report Type: Spontaneous
  Country: US (occurrence: None)
  Receive Date: 20140115
  Receipt Date: 20140115
  Transmission Date: 20141002
  Serious: No
  Sender: FDA-Public Use
  Company Number: None

PATIENT
  Age: 57 Year
  Sex: Male
  Weight: 94.8 kg

DRUGS (2)
  1. SIMVASTATIN [Suspect]
     Indication: HYPERLIPIDAEMIA
     Route: 048
     Dates: start: 20110120, end: 20110520
  2. ATORVASTATIN [Suspect]
     Route: 048
     Dates: start: 20130220, end: 20131230

REACTIONS (3)
  - Pain [None]
  - Myalgia [None]
  - Muscle spasms [None]
